FAERS Safety Report 5363610-3 (Version None)
Quarter: 2007Q2

REPORT INFORMATION
  Report Type: 
  Country: None (occurrence: None)
  Receive Date: 20070620
  Receipt Date: 20070612
  Transmission Date: 20071010
  Serious: Yes (Life-Threatening)
  Sender: FDA-Public Use
  Company Number: B0475529A

PATIENT
  Age: 87 Year
  Sex: Female

DRUGS (6)
  1. ARIXTRA [Suspect]
     Indication: PHLEBITIS
     Route: 058
     Dates: start: 20070220, end: 20070305
  2. LASIX [Concomitant]
     Indication: ESSENTIAL HYPERTENSION
     Route: 048
  3. VASTAREL [Concomitant]
     Route: 048
  4. ATHYMIL [Concomitant]
     Route: 048
  5. LEXOMIL [Concomitant]
     Route: 048
  6. DESLORATADINE [Concomitant]
     Route: 048

REACTIONS (7)
  - ABDOMINAL HAEMATOMA [None]
  - APHASIA [None]
  - HAEMOGLOBIN DECREASED [None]
  - HEMIPLEGIA [None]
  - INTRA-ABDOMINAL HAEMORRHAGE [None]
  - MYOCARDIAL ISCHAEMIA [None]
  - RENAL FAILURE ACUTE [None]
